FAERS Safety Report 9185615 (Version 1)
Quarter: 2013Q1

REPORT INFORMATION
  Report Type: Report from Study
  Country: US (occurrence: US)
  Receive Date: 20130325
  Receipt Date: 20130325
  Transmission Date: 20140127
  Serious: Yes (Other)
  Sender: FDA-Public Use
  Company Number: US-ABBOTT-13P-163-1064274-00

PATIENT
  Sex: Female
  Weight: 78.09 kg

DRUGS (12)
  1. HUMIRA [Suspect]
     Indication: CROHN^S DISEASE
     Dates: start: 2008
  2. HUMIRA [Suspect]
     Dosage: 160 MILLIGRAM LOADING DOSE
     Dates: start: 201301
  3. DILANTIN [Concomitant]
     Indication: EPILEPSY
  4. DEPAKOTE [Concomitant]
     Indication: EPILEPSY
  5. FOLIC ACID [Concomitant]
     Indication: IMMUNE SYSTEM DISORDER
  6. VITAMIN E [Concomitant]
     Indication: IMMUNE SYSTEM DISORDER
  7. VITAMIN C [Concomitant]
     Indication: IMMUNE SYSTEM DISORDER
  8. VITAMIN D [Concomitant]
     Indication: IMMUNE SYSTEM DISORDER
  9. FISH OIL [Concomitant]
     Indication: IMMUNE SYSTEM DISORDER
  10. PAXIL [Concomitant]
     Indication: PRODUCT USED FOR UNKNOWN INDICATION
  11. CALCIUM [Concomitant]
     Indication: PRODUCT USED FOR UNKNOWN INDICATION
  12. MULTI-DAILY VITAMIN [Concomitant]
     Indication: PRODUCT USED FOR UNKNOWN INDICATION

REACTIONS (3)
  - Pelvic mass [Recovered/Resolved]
  - Sepsis [Recovered/Resolved]
  - Herpes virus infection [Unknown]
